FAERS Safety Report 5199374-6 (Version None)
Quarter: 2006Q4

REPORT INFORMATION
  Report Type: 
  Country: None (occurrence: None)
  Receive Date: 20061016
  Receipt Date: 20060620
  Transmission Date: 20070319
  Serious: No
  Sender: FDA-Public Use
  Company Number: 2006SP002476

PATIENT
  Age: 74 Year
  Sex: Female
  Weight: 68.0396 kg

DRUGS (5)
  1. LUNESTA [Suspect]
     Indication: INSOMNIA
     Dosage: SEE IMAGE
     Route: 048
     Dates: start: 20060516, end: 20060525
  2. LUNESTA [Suspect]
     Indication: INSOMNIA
     Dosage: SEE IMAGE
     Route: 048
     Dates: start: 20060526, end: 20060528
  3. LUNESTA [Suspect]
     Indication: INSOMNIA
     Dosage: SEE IMAGE
     Route: 048
     Dates: start: 20060529, end: 20060531
  4. LUNESTA [Suspect]
     Indication: INSOMNIA
     Dosage: SEE IMAGE
     Route: 048
     Dates: start: 20060601, end: 20060602
  5. TYLENOL [Concomitant]

REACTIONS (5)
  - DIZZINESS [None]
  - DRUG INEFFECTIVE [None]
  - DYSPEPSIA [None]
  - MIDDLE INSOMNIA [None]
  - SOMNOLENCE [None]
